FAERS Safety Report 6301302-4 (Version None)
Quarter: 2009Q3

REPORT INFORMATION
  Report Type: 
  Country: None (occurrence: None)
  Receive Date: 20090805
  Receipt Date: 20090805
  Transmission Date: 20100115
  Serious: Yes (Life-Threatening, Other)
  Sender: FDA-Public Use
  Company Number: None

PATIENT
  Age: 64 Year
  Sex: Female
  Weight: 122.4712 kg

DRUGS (1)
  1. EVOXAC [Suspect]
     Indication: SJOGREN'S SYNDROME
     Dosage: 1, 3 X'S, PO
     Route: 048
     Dates: start: 20030910, end: 20080610

REACTIONS (4)
  - CHROMATURIA [None]
  - NOCTURIA [None]
  - RENAL DISORDER [None]
  - URINE ODOUR ABNORMAL [None]
